FAERS Safety Report 7720641-3 (Version None)
Quarter: 2011Q3

REPORT INFORMATION
  Report Type: 
  Country: None (occurrence: None)
  Receive Date: 20110831
  Receipt Date: 20110819
  Transmission Date: 20111222
  Serious: Yes (Hospitalization, Other)
  Sender: FDA-Public Use
  Company Number: PHHY2011US64190

PATIENT
  Sex: Female
  Weight: 64.399 kg

DRUGS (5)
  1. EXJADE [Suspect]
     Indication: IRON OVERLOAD
     Dosage: 500 MG, BID
     Route: 048
     Dates: start: 20090406
  2. HYDROXYUREA [Concomitant]
     Indication: ANAEMIA
     Dosage: 500 MG, UNK
     Route: 048
     Dates: start: 20090406
  3. LORTAB [Concomitant]
     Indication: PAIN
     Dosage: UNK UKN, UNK
     Route: 048
  4. FOLIC ACID [Concomitant]
     Indication: ANAEMIA
     Dosage: 1 MG, DAILY
     Route: 048
     Dates: start: 20090406
  5. WARFARIN SODIUM [Concomitant]
     Indication: VENA CAVA THROMBOSIS
     Dosage: 10 MG, DAILY
     Route: 048
     Dates: start: 20090406

REACTIONS (3)
  - SERUM FERRITIN INCREASED [None]
  - SICKLE CELL ANAEMIA WITH CRISIS [None]
  - RETINAL INJURY [None]
